FAERS Safety Report 7765269-4 (Version None)
Quarter: 2011Q3

REPORT INFORMATION
  Report Type: 
  Country: None (occurrence: None)
  Receive Date: 20110921
  Receipt Date: 20110918
  Transmission Date: 20111222
  Serious: Yes (Other)
  Sender: FDA-Public Use
  Company Number: IL-GLAXOSMITHKLINE-B0748990A

PATIENT
  Sex: Male

DRUGS (2)
  1. NEXAVAR [Concomitant]
     Indication: PRODUCT USED FOR UNKNOWN INDICATION
     Route: 065
  2. VOTRIENT [Suspect]
     Indication: RENAL CELL CARCINOMA
     Route: 065
     Dates: start: 20110701

REACTIONS (1)
  - ANAEMIA [None]
